FAERS Safety Report 14705838 (Version 7)
Quarter: 2018Q3

REPORT INFORMATION
  Report Type: Report from Study
  Country: CA (occurrence: CA)
  Receive Date: 20180402
  Receipt Date: 20180925
  Transmission Date: 20181010
  Serious: Yes (Other)
  Sender: FDA-Public Use
  Company Number: CA-OTSUKA-2018_000532

PATIENT
  Age: 34 Year
  Sex: Female

DRUGS (9)
  1. CANDESARTAN. [Concomitant]
     Active Substance: CANDESARTAN
     Indication: PRODUCT USED FOR UNKNOWN INDICATION
     Dosage: 4 MG, QD
     Route: 065
  2. TOLVAPTAN [Suspect]
     Active Substance: TOLVAPTAN
     Indication: CONGENITAL CYSTIC KIDNEY DISEASE
     Dosage: 45 MG, QD (IN MORNING)
     Route: 048
     Dates: start: 20180103, end: 20180108
  3. TOLVAPTAN [Suspect]
     Active Substance: TOLVAPTAN
     Dosage: 15 MG, BID, THEN OFF X2?3 DAYS
     Route: 048
     Dates: start: 201808
  4. NADOLOL. [Concomitant]
     Active Substance: NADOLOL
     Indication: PRODUCT USED FOR UNKNOWN INDICATION
     Dosage: 80 MG, QD
     Route: 065
  5. TOLVAPTAN [Suspect]
     Active Substance: TOLVAPTAN
     Dosage: 30 MG, QD (FOR A WEEK)
     Route: 048
  6. TOLVAPTAN [Suspect]
     Active Substance: TOLVAPTAN
     Dosage: 45 MG, QD (IN MORNING)
     Route: 048
  7. TOLVAPTAN [Suspect]
     Active Substance: TOLVAPTAN
     Dosage: 15 MG, QD
     Route: 048
     Dates: start: 20180402
  8. TOLVAPTAN [Suspect]
     Active Substance: TOLVAPTAN
     Dosage: 15 MG, QD (IN EVENING)
     Route: 048
     Dates: start: 20180103, end: 20180108
  9. TOLVAPTAN [Suspect]
     Active Substance: TOLVAPTAN
     Dosage: 15 MG, QD (SOMETIMES, IF HIKING A DAY NOT DRINKING MUCH WATER)
     Route: 048

REACTIONS (23)
  - Pain [Recovered/Resolved]
  - Musculoskeletal pain [Recovered/Resolved]
  - Neutrophil count increased [Unknown]
  - Blood urine present [Unknown]
  - Blood bilirubin abnormal [Unknown]
  - Pollakiuria [Not Recovered/Not Resolved]
  - Influenza like illness [Unknown]
  - Blood magnesium decreased [Unknown]
  - Incorrect dose administered [Unknown]
  - Treatment noncompliance [Unknown]
  - Anaphylactic reaction [Unknown]
  - Insomnia [Not Recovered/Not Resolved]
  - Polydipsia [Not Recovered/Not Resolved]
  - Dehydration [Unknown]
  - Back pain [Recovered/Resolved]
  - Cough [Recovered/Resolved]
  - Muscle spasms [Recovered/Resolved]
  - Headache [Recovered/Resolved]
  - Aspartate aminotransferase increased [Unknown]
  - Alanine aminotransferase increased [Unknown]
  - Therapy cessation [Unknown]
  - Adverse event [Recovered/Resolved]
  - Pain in extremity [Recovered/Resolved]

NARRATIVE: CASE EVENT DATE: 201801
